FAERS Safety Report 11325899 (Version 1)
Quarter: 2015Q3

REPORT INFORMATION
  Report Type: Spontaneous
  Country: US (occurrence: US)
  Receive Date: 20150731
  Receipt Date: 20150731
  Transmission Date: 20151125
  Serious: No
  Sender: FDA-Public Use
  Company Number: US-ROCHE-1428917

PATIENT
  Sex: Female

DRUGS (2)
  1. INCIVEK [Suspect]
     Active Substance: TELAPREVIR
     Indication: CHRONIC HEPATITIS C
     Route: 065
  2. PEGASYS [Suspect]
     Active Substance: PEGINTERFERON ALFA-2A
     Indication: CHRONIC HEPATITIS C
     Route: 065

REACTIONS (9)
  - Asthenia [Not Recovered/Not Resolved]
  - Skin ulcer [Unknown]
  - Vomiting [Not Recovered/Not Resolved]
  - Hepatic enzyme increased [Unknown]
  - Feeling hot [Not Recovered/Not Resolved]
  - Abdominal pain upper [Unknown]
  - Nausea [Unknown]
  - Vaginal discharge [Unknown]
  - Hot flush [Unknown]
